FAERS Safety Report 19494535 (Version 2)
Quarter: 2021Q3

REPORT INFORMATION
  Report Type: Spontaneous
  Country: US (occurrence: US)
  Receive Date: 20210706
  Receipt Date: 20210906
  Transmission Date: 20211014
  Serious: Yes (Other)
  Sender: FDA-Public Use
  Company Number: US-CELGENEUS-USA-20210700133

PATIENT
  Age: 73 Year
  Sex: Female

DRUGS (2)
  1. DEXAMETHASONE. [Suspect]
     Active Substance: DEXAMETHASONE
     Indication: PLASMA CELL MYELOMA
     Route: 065
  2. REVLIMID [Suspect]
     Active Substance: LENALIDOMIDE
     Indication: PLASMA CELL MYELOMA
     Dosage: 25 MILLIGRAM
     Route: 048
     Dates: start: 20210616

REACTIONS (7)
  - Constipation [Unknown]
  - Dehydration [Unknown]
  - Adverse drug reaction [Unknown]
  - Blood pressure fluctuation [Unknown]
  - Blood glucose abnormal [Unknown]
  - Atrial fibrillation [Unknown]
  - Muscle spasms [Unknown]

NARRATIVE: CASE EVENT DATE: 202106
